FAERS Safety Report 16351415 (Version 3)
Quarter: 2019Q4

REPORT INFORMATION
  Report Type: Report from Study
  Country: JP (occurrence: JP)
  Receive Date: 20190524
  Receipt Date: 20191031
  Transmission Date: 20200122
  Serious: Yes (Hospitalization, Other)
  Sender: FDA-Public Use
  Company Number: JP-GLAXOSMITHKLINE-JP2019JPN091076

PATIENT
  Sex: Female
  Weight: 73 kg

DRUGS (23)
  1. AZOSEMIDE TABLET [Concomitant]
     Dosage: UNK
  2. MIGLITOL OD [Concomitant]
     Dosage: UNK
  3. INSULIN GLARGINE BS INJECTION [Concomitant]
     Dosage: UNK
  4. TRYPTANOL [Concomitant]
     Active Substance: AMITRIPTYLINE
     Dosage: UNK
  5. GIBONZ [Concomitant]
     Dosage: UNK
  6. RABEPRAZOLE NA TABLET [Concomitant]
     Dosage: UNK
  7. TORASEMIDE [Concomitant]
     Active Substance: TORSEMIDE
     Dosage: UNK
  8. BELIMUMAB [Suspect]
     Active Substance: BELIMUMAB
     Indication: SYSTEMIC LUPUS ERYTHEMATOSUS
     Dosage: 10 MG/KG, EVERY 2 WEEKS
     Route: 041
     Dates: start: 20180814, end: 20180911
  9. TRAMCET COMBINATION TABLETS [Concomitant]
     Indication: ARTHRALGIA
     Dosage: UNK
  10. BELIMUMAB [Suspect]
     Active Substance: BELIMUMAB
     Dosage: 10 MG/KG, EVERY 4 WEEKS
     Route: 041
     Dates: start: 20181009, end: 20190104
  11. PROGRAF [Suspect]
     Active Substance: TACROLIMUS
     Indication: SYSTEMIC LUPUS ERYTHEMATOSUS
     Dosage: 3 MG, 1D
     Route: 048
  12. GLUFAST TABLET [Concomitant]
     Dosage: UNK
  13. FUROSEMIDE TABLETS [Concomitant]
     Active Substance: FUROSEMIDE
     Dosage: UNK
  14. NIFEDIPINE CR TABLETS [Concomitant]
     Dosage: UNK
  15. ISOSORBIDE DINITRATE. [Concomitant]
     Active Substance: ISOSORBIDE DINITRATE
     Dosage: UNK
  16. CRESTOR OD TABLETS [Concomitant]
     Dosage: UNK
  17. BENLYSTA [Suspect]
     Active Substance: BELIMUMAB
     Indication: SYSTEMIC LUPUS ERYTHEMATOSUS
     Dosage: UNK
     Route: 058
     Dates: start: 2019
  18. RINDERON (BETAMETHASONE) [Suspect]
     Active Substance: BETAMETHASONE
     Indication: SYSTEMIC LUPUS ERYTHEMATOSUS
     Dosage: 2 MG, 1D
     Route: 048
     Dates: start: 20141104
  19. BAKTAR COMBINATION TABLETS [Concomitant]
     Active Substance: SULFAMETHOXAZOLE\TRIMETHOPRIM
     Indication: ANTIFUNGAL PROPHYLAXIS
     Dosage: UNK
  20. ASPIRIN ENTERIC-COATED TABLET [Concomitant]
     Dosage: UNK
  21. ALFACALCIDOL CAPSULE [Concomitant]
     Dosage: UNK
  22. BENET TABLETS [Concomitant]
     Active Substance: RISEDRONATE SODIUM
     Dosage: UNK
  23. EQUA TABLETS [Concomitant]
     Dosage: UNK

REACTIONS (2)
  - Cellulitis [Recovered/Resolved]
  - Arthritis bacterial [Unknown]

NARRATIVE: CASE EVENT DATE: 2019
